FAERS Safety Report 21077909 (Version 1)
Quarter: 2022Q3

REPORT INFORMATION
  Report Type: Spontaneous
  Country: US (occurrence: US)
  Receive Date: 20220713
  Receipt Date: 20220713
  Transmission Date: 20221027
  Serious: Yes (Other)
  Sender: FDA-Public Use
  Company Number: US-GLAXOSMITHKLINE-US2022GSK019499

PATIENT
  Sex: Male

DRUGS (21)
  1. ZANTAC [Suspect]
     Active Substance: RANITIDINE HYDROCHLORIDE
     Indication: Gastrooesophageal reflux disease
     Dosage: 150 MG, QD
     Route: 065
     Dates: start: 201001, end: 201501
  2. ZANTAC [Suspect]
     Active Substance: RANITIDINE HYDROCHLORIDE
     Dosage: 75 MG, ONCE
     Route: 065
     Dates: start: 201001, end: 201501
  3. ZANTAC [Suspect]
     Active Substance: RANITIDINE HYDROCHLORIDE
     Dosage: 75 MG, BID
     Route: 065
     Dates: start: 201001, end: 201501
  4. ZANTAC [Suspect]
     Active Substance: RANITIDINE HYDROCHLORIDE
     Indication: Gastrooesophageal reflux disease
     Dosage: 150 MG, QD
     Route: 065
     Dates: start: 201001, end: 201501
  5. ZANTAC [Suspect]
     Active Substance: RANITIDINE HYDROCHLORIDE
     Dosage: 75 MG, ONCE
     Route: 065
     Dates: start: 201001, end: 201501
  6. ZANTAC [Suspect]
     Active Substance: RANITIDINE HYDROCHLORIDE
     Dosage: 75 MG, BID
     Route: 065
     Dates: start: 201001, end: 201501
  7. RANITIDINE [Suspect]
     Active Substance: RANITIDINE
     Indication: Gastrooesophageal reflux disease
     Dosage: 150 MG, QD
     Route: 065
     Dates: start: 201001, end: 201501
  8. RANITIDINE [Suspect]
     Active Substance: RANITIDINE
     Dosage: 75 MG, ONCE
     Route: 065
     Dates: start: 201001, end: 201501
  9. RANITIDINE [Suspect]
     Active Substance: RANITIDINE
     Dosage: 75 MG, BID
     Route: 065
     Dates: start: 201001, end: 201501
  10. RANITIDINE [Suspect]
     Active Substance: RANITIDINE
     Indication: Gastrooesophageal reflux disease
     Dosage: 150 MG, QD
     Route: 065
     Dates: start: 201001, end: 201501
  11. RANITIDINE [Suspect]
     Active Substance: RANITIDINE
     Dosage: 75 MG, ONCE
     Route: 065
     Dates: start: 201001, end: 201501
  12. RANITIDINE [Suspect]
     Active Substance: RANITIDINE
     Dosage: 75 MG, BID
     Route: 065
     Dates: start: 201001, end: 201501
  13. ZANTAC [Suspect]
     Active Substance: RANITIDINE HYDROCHLORIDE
     Indication: Gastrooesophageal reflux disease
     Dosage: 150 MG, QD
     Route: 065
     Dates: start: 201001, end: 201501
  14. ZANTAC [Suspect]
     Active Substance: RANITIDINE HYDROCHLORIDE
     Dosage: 75 MG, ONCE
     Route: 065
     Dates: start: 201001, end: 201501
  15. ZANTAC [Suspect]
     Active Substance: RANITIDINE HYDROCHLORIDE
     Dosage: 75 MG, BID
     Route: 065
     Dates: start: 201001, end: 201501
  16. RANITIDINE [Suspect]
     Active Substance: RANITIDINE
     Indication: Gastrooesophageal reflux disease
     Dosage: 150 MG, QD
     Route: 065
     Dates: start: 201001, end: 201501
  17. RANITIDINE [Suspect]
     Active Substance: RANITIDINE
     Dosage: 75 MG, ONCE
     Route: 065
     Dates: start: 201001, end: 201501
  18. RANITIDINE [Suspect]
     Active Substance: RANITIDINE
     Dosage: 75 MG, BID
     Route: 065
     Dates: start: 201001, end: 201501
  19. RANITIDINE [Suspect]
     Active Substance: RANITIDINE
     Indication: Gastrooesophageal reflux disease
     Dosage: 150 MG, QD
     Route: 065
     Dates: start: 201001, end: 201501
  20. RANITIDINE [Suspect]
     Active Substance: RANITIDINE
     Dosage: 75 MG, ONCE
     Route: 065
     Dates: start: 201001, end: 201501
  21. RANITIDINE [Suspect]
     Active Substance: RANITIDINE
     Dosage: 75 MG, BID
     Route: 065
     Dates: start: 201001, end: 201501

REACTIONS (1)
  - Renal cancer [Unknown]
